FAERS Safety Report 7945334-9 (Version None)
Quarter: 2011Q4

REPORT INFORMATION
  Report Type: 
  Country: None (occurrence: None)
  Receive Date: 20111129
  Receipt Date: 20110324
  Transmission Date: 20120403
  Serious: No
  Sender: FDA-Public Use
  Company Number: US-GLAXOSMITHKLINE-A0919824A

PATIENT
  Age: 42 Year
  Sex: Male

DRUGS (4)
  1. WELLBUTRIN SR [Suspect]
     Indication: DEPRESSION
     Dosage: 150MG PER DAY
     Route: 048
     Dates: start: 20110322
  2. ZOLOFT [Concomitant]
  3. AMBIEN [Concomitant]
  4. ZITHROMAX [Suspect]
     Route: 065
     Dates: start: 20110321

REACTIONS (2)
  - ANXIETY [None]
  - URTICARIA [None]
